FAERS Safety Report 8438395-4 (Version None)
Quarter: 2012Q2

REPORT INFORMATION
  Report Type: 
  Country: None (occurrence: None)
  Receive Date: 20120614
  Receipt Date: 20120604
  Transmission Date: 20120825
  Serious: Yes (Hospitalization, Other)
  Sender: FDA-Public Use
  Company Number: US-ELI_LILLY_AND_COMPANY-US201204000126

PATIENT
  Sex: Female

DRUGS (2)
  1. FORTEO [Suspect]
     Indication: OSTEOPOROSIS
     Dosage: UNK UNK, UNKNOWN
  2. FORTEO [Suspect]
     Dosage: UNK, UNKNOWN

REACTIONS (7)
  - PAIN IN EXTREMITY [None]
  - ARTHRALGIA [None]
  - LETHARGY [None]
  - MALAISE [None]
  - KNEE ARTHROPLASTY [None]
  - PALPITATIONS [None]
  - PNEUMONIA [None]
